FAERS Safety Report 5959905-2 (Version None)
Quarter: 2008Q4

REPORT INFORMATION
  Report Type: 
  Country: None (occurrence: None)
  Receive Date: 20081119
  Receipt Date: 20081119
  Transmission Date: 20090506
  Serious: Yes (Hospitalization)
  Sender: FDA-Public Use
  Company Number: None

PATIENT
  Age: 42 Year
  Sex: Male
  Weight: 77 kg

DRUGS (14)
  1. CIDOFOVIR [Suspect]
     Indication: ADENOVIRUS INFECTION
     Dosage: 380MG IV QWEEK
     Route: 042
     Dates: start: 20080630
  2. ACYCLOVIR [Concomitant]
  3. CASPOFUNGIN [Concomitant]
  4. HYDROCORTISONE [Concomitant]
  5. INSULIN [Concomitant]
  6. LOPERAMIDE HCL [Concomitant]
  7. MEROPENEM [Concomitant]
  8. OXYBUTININ [Concomitant]
  9. OXYCODONE HCL [Concomitant]
  10. POTASSIUM CHLORIDE [Concomitant]
  11. QUETIAPINE FUMARATE [Concomitant]
  12. RANITIDINE [Concomitant]
  13. BACTRIM [Concomitant]
  14. VANCOMYCIN [Concomitant]

REACTIONS (5)
  - ANURIA [None]
  - BLOOD CREATININE INCREASED [None]
  - BLOOD UREA INCREASED [None]
  - HAEMODIALYSIS [None]
  - RENAL DISORDER [None]
